FAERS Safety Report 9586454 (Version 2)
Quarter: 2013Q4

REPORT INFORMATION
  Report Type: Spontaneous
  Country: AR (occurrence: AR)
  Receive Date: 20131003
  Receipt Date: 20131003
  Transmission Date: 20140711
  Serious: Yes (Other)
  Sender: FDA-Public Use
  Company Number: AR-PFIZER INC-2013230370

PATIENT
  Age: 4 Year
  Sex: Male

DRUGS (1)
  1. MOROCTOCOG ALFA [Suspect]
     Indication: FACTOR VIII DEFICIENCY
     Dosage: 500 IU, AS NEEDED
     Dates: start: 20120305

REACTIONS (4)
  - Haemarthrosis [Recovered/Resolved]
  - Limb injury [Unknown]
  - Contusion [Recovered/Resolved]
  - Respiratory disorder [Recovered/Resolved]
